FAERS Safety Report 22146132 (Version 1)
Quarter: 2023Q1

REPORT INFORMATION
  Report Type: Report from Study
  Country: DE (occurrence: None)
  Receive Date: 20230328
  Receipt Date: 20230328
  Transmission Date: 20230418
  Serious: Yes (Hospitalization, Other)
  Sender: FDA-Public Use
  Company Number: DE-ROCHE-3306472

PATIENT
  Age: 72 Year
  Sex: Female
  Weight: 80 kg

DRUGS (3)
  1. OBINUTUZUMAB [Suspect]
     Active Substance: OBINUTUZUMAB
     Indication: Chronic lymphocytic leukaemia
     Dosage: DATE OF LAST DOSE ON 29/MAR/2022 AND DOSE IS 1000 MG
     Route: 042
     Dates: start: 20210223
  2. VENETOCLAX [Suspect]
     Active Substance: VENETOCLAX
     Indication: Chronic lymphocytic leukaemia
     Dosage: DATE OF LAST DOSE ON 19/JUN/2022 IS 400 MG
     Route: 065
     Dates: start: 20210420
  3. ZANUBRUTINIB [Suspect]
     Active Substance: ZANUBRUTINIB
     Indication: Chronic lymphocytic leukaemia
     Dosage: DATE OF LAST DOSE ON 19/JUN/2022 IS 320 MG
     Route: 065
     Dates: start: 20210223

REACTIONS (2)
  - Basal cell carcinoma [Recovered/Resolved]
  - COVID-19 pneumonia [Not Recovered/Not Resolved]

NARRATIVE: CASE EVENT DATE: 20230210
